FAERS Safety Report 8535337-8 (Version None)
Quarter: 2012Q3

REPORT INFORMATION
  Report Type: 
  Country: None (occurrence: None)
  Receive Date: 20120725
  Receipt Date: 20120717
  Transmission Date: 20120928
  Serious: No
  Sender: FDA-Public Use
  Company Number: US-BIOGENIDEC-2012BI007254

PATIENT
  Sex: Female

DRUGS (9)
  1. PROGMAFRESIS (NOS) [Concomitant]
     Indication: FATIGUE
  2. PROGMAFRESIS (NOS) [Concomitant]
     Indication: BURNING SENSATION
  3. PROGMAFRESIS (NOS) [Concomitant]
     Indication: FALL
  4. CAMPATH WINDOWS [Concomitant]
     Indication: LEUKAEMIA
  5. PROGMAFRESIS (NOS) [Concomitant]
     Indication: HYPOAESTHESIA
  6. TYSABRI [Suspect]
     Route: 042
     Dates: start: 20120308
  7. NOVANTRONE [Concomitant]
     Indication: BURNING SENSATION
  8. TYSABRI [Suspect]
     Indication: MULTIPLE SCLEROSIS
     Route: 042
     Dates: start: 20070710, end: 20100709
  9. PROGMAFRESIS (NOS) [Concomitant]
     Indication: MUSCULAR WEAKNESS

REACTIONS (8)
  - MIGRAINE [None]
  - BLINDNESS [None]
  - VISUAL IMPAIRMENT [None]
  - HYPERSOMNIA [None]
  - FEELING ABNORMAL [None]
  - ABASIA [None]
  - MUSCULAR WEAKNESS [None]
  - CONTUSION [None]
